FAERS Safety Report 6339494-3 (Version None)
Quarter: 2009Q3

REPORT INFORMATION
  Report Type: 
  Country: None (occurrence: None)
  Receive Date: 20090903
  Receipt Date: 20090826
  Transmission Date: 20100115
  Serious: Yes (Hospitalization)
  Sender: FDA-Public Use
  Company Number: US-BAYER-200928596NA

PATIENT
  Age: 60 Year
  Sex: Female

DRUGS (8)
  1. LEUKINE [Suspect]
     Indication: BREAST CANCER FEMALE
     Dosage: FORMULATION LIQUID 500 MCG/ML
     Route: 058
     Dates: start: 20090729, end: 20090729
  2. LEUKINE [Suspect]
     Dosage: FORMULATION LIQUID 500 MCG/ML
     Dates: start: 20090608, end: 20090612
  3. LEUKINE [Suspect]
     Dosage: FORMULATION LIQUID 500 MCG/ML
     Dates: start: 20090620, end: 20090620
  4. LEUKINE [Suspect]
     Dosage: FORMULATION LIQUID 500 MCG/ML
     Dates: start: 20090718, end: 20090718
  5. LEUKINE [Suspect]
     Dosage: FORMULATION LIQUID 500 MCG/ML
     Dates: start: 20090723, end: 20090723
  6. LEUKINE [Suspect]
     Dosage: FORMULATION LIQUID 500 MCG/ML
     Dates: start: 20090721, end: 20090721
  7. LEUKINE [Suspect]
     Dosage: FORMULATION LIQUID 500 MCG/ML
     Dates: start: 20090622, end: 20090624
  8. TAXOL [Concomitant]
     Dosage: AS USED: 120 MG/M2
     Dates: start: 20090717

REACTIONS (3)
  - ANAPHYLACTIC SHOCK [None]
  - EYE SWELLING [None]
  - PHARYNGEAL OEDEMA [None]
